FAERS Safety Report 5833967-5 (Version None)
Quarter: 2008Q3

REPORT INFORMATION
  Report Type: 
  Country: None (occurrence: None)
  Receive Date: 20080731
  Receipt Date: 20080716
  Transmission Date: 20090109
  Serious: Yes (Life-Threatening, Hospitalization, Other)
  Sender: FDA-Public Use
  Company Number: MC200800316

PATIENT
  Age: 66 Year
  Sex: Male

DRUGS (2)
  1. ANGIOMAX [Suspect]
     Indication: PERCUTANEOUS CORONARY INTERVENTION
     Dosage: 0.75 MG/KG, BOLUS, INTRAVENOUS, 1.75 MG/KG, HR, INTRAVENOUS
     Route: 040
     Dates: start: 20080716, end: 20080716
  2. ANGIOMAX [Suspect]
     Indication: PERCUTANEOUS CORONARY INTERVENTION
     Dosage: 0.75 MG/KG, BOLUS, INTRAVENOUS, 1.75 MG/KG, HR, INTRAVENOUS
     Route: 040
     Dates: start: 20080716, end: 20080716

REACTIONS (4)
  - CORONARY ARTERY DISSECTION [None]
  - CORONARY ARTERY PERFORATION [None]
  - HAEMOGLOBIN DECREASED [None]
  - IATROGENIC INJURY [None]
